FAERS Safety Report 6619938-X (Version None)
Quarter: 2010Q1

REPORT INFORMATION
  Report Type: 
  Country: None (occurrence: None)
  Receive Date: 20100304
  Receipt Date: 20100224
  Transmission Date: 20100710
  Serious: Yes (Death)
  Sender: FDA-Public Use
  Company Number: 1000012197

PATIENT
  Age: 57 Year
  Sex: Female

DRUGS (7)
  1. DILTIAZEM [Suspect]
  2. LORAZEPAM [Suspect]
  3. METHYLPHENIDATE [Suspect]
  4. DULOXETINE HYDROCHLORIDE [Suspect]
  5. ZOLPIDEM [Suspect]
  6. CELECOXIB [Suspect]
  7. WARFARIN SODIUM [Suspect]

REACTIONS (2)
  - COMPLETED SUICIDE [None]
  - MULTIPLE DRUG OVERDOSE [None]
